FAERS Safety Report 7625178-8 (Version None)
Quarter: 2011Q3

REPORT INFORMATION
  Report Type: 
  Country: None (occurrence: None)
  Receive Date: 20110721
  Receipt Date: 20101209
  Transmission Date: 20111222
  Serious: No
  Sender: FDA-Public Use
  Company Number: US-BAYER-2011-006393

PATIENT
  Age: 63 Year
  Sex: Female
  Weight: 58.05 kg

DRUGS (3)
  1. CYMBALTA [Concomitant]
     Dosage: 20 MG, UNK
  2. BETASERON [Suspect]
     Dosage: 0.25 MG, QOD
     Route: 058
  3. LORTAB [Concomitant]

REACTIONS (1)
  - INJECTION SITE HAEMATOMA [None]
